FAERS Safety Report 7354469 (Version 2)
Quarter: 2014Q2

REPORT INFORMATION
  Report Type: Spontaneous
  Country: GB (occurrence: None)
  Receive Date: 20100330
  Receipt Date: 20140415
  Transmission Date: 20141212
  Serious: Yes (Other)
  Sender: FDA-Public Use
  Company Number: AUR-APL-2009-01609

PATIENT
  Age: 62 Year
  Sex: Male

DRUGS (1)
  1. MINOCYCLINE [Suspect]
     Indication: LYMPHOMATOID PAPULOSIS

REACTIONS (7)
  - Drug hypersensitivity [None]
  - Confusional state [None]
  - Malaise [None]
  - Mobility decreased [None]
  - Cognitive disorder [None]
  - Apraxia [None]
  - Eosinophilia [None]
